FAERS Safety Report 17240295 (Version 1)
Quarter: 2020Q1

REPORT INFORMATION
  Report Type: Spontaneous
  Country: FR (occurrence: FR)
  Receive Date: 20200107
  Receipt Date: 20200107
  Transmission Date: 20200409
  Serious: Yes (Hospitalization)
  Sender: FDA-Public Use
  Company Number: FR-TEVA-2020-FR-1163456

PATIENT
  Age: 88 Year
  Sex: Female
  Weight: 85 kg

DRUGS (5)
  1. CIPROFLOXACINE [Suspect]
     Active Substance: CIPROFLOXACIN
     Indication: PYELONEPHRITIS ACUTE
     Route: 048
     Dates: start: 20190514, end: 20190519
  2. SIMVASTATINE [Concomitant]
     Active Substance: SIMVASTATIN
  3. UVEDOSE [Concomitant]
     Active Substance: CHOLECALCIFEROL
  4. CLOPIDOGREL [Concomitant]
     Active Substance: CLOPIDOGREL BISULFATE
  5. IZALGI [Concomitant]
     Active Substance: ACETAMINOPHEN\OPIUM

REACTIONS (1)
  - Rash maculo-papular [Recovered/Resolved]

NARRATIVE: CASE EVENT DATE: 20190521
